FAERS Safety Report 20060373 (Version 1)
Quarter: 2021Q4

REPORT INFORMATION
  Report Type: Spontaneous
  Country: US (occurrence: US)
  Receive Date: 20211112
  Receipt Date: 20211112
  Transmission Date: 20220303
  Serious: No
  Sender: FDA-Public Use
  Company Number: US-BEH-2021138212

PATIENT
  Age: 72 Year
  Sex: Female

DRUGS (3)
  1. HIZENTRA [Suspect]
     Active Substance: HUMAN IMMUNOGLOBULIN G
     Indication: Primary immunodeficiency syndrome
     Dosage: 11 GRAM, QW
     Route: 065
     Dates: start: 20211020, end: 20211020
  2. HIZENTRA [Suspect]
     Active Substance: HUMAN IMMUNOGLOBULIN G
     Dosage: 11 GRAM, QW
     Route: 065
     Dates: start: 20211027, end: 20211027
  3. HIZENTRA [Suspect]
     Active Substance: HUMAN IMMUNOGLOBULIN G
     Dosage: 11 GRAM, QW
     Route: 065
     Dates: start: 20211103, end: 20211103

REACTIONS (15)
  - Lethargy [Recovered/Resolved]
  - Infusion site swelling [Recovered/Resolved]
  - Infusion site erythema [Recovered/Resolved]
  - Infusion site warmth [Recovered/Resolved]
  - Infusion site urticaria [Recovered/Resolved]
  - Lethargy [Recovered/Resolved]
  - Recalled product administered [Recovered/Resolved]
  - Infusion site swelling [Recovered/Resolved]
  - Recalled product administered [Recovered/Resolved]
  - Infusion site erythema [Recovered/Resolved]
  - Recalled product administered [Recovered/Resolved]
  - Infusion site warmth [Recovered/Resolved]
  - Recalled product administered [Recovered/Resolved]
  - Infusion site urticaria [Recovered/Resolved]
  - Recalled product administered [Recovered/Resolved]

NARRATIVE: CASE EVENT DATE: 20211020
